FAERS Safety Report 7420590-4 (Version None)
Quarter: 2011Q2

REPORT INFORMATION
  Report Type: 
  Country: None (occurrence: None)
  Receive Date: 20110418
  Receipt Date: 20110411
  Transmission Date: 20111010
  Serious: Yes (Hospitalization, Other)
  Sender: FDA-Public Use
  Company Number: FR-NAPPMUNDI-GBR-2011-0008061

PATIENT
  Age: 79 Year
  Sex: Female

DRUGS (15)
  1. SIFROL [Concomitant]
  2. NEURONTIN [Concomitant]
  3. SEROPLEX [Concomitant]
  4. CARDENSIEL [Concomitant]
  5. PREVISCAN                          /00261401/ [Concomitant]
  6. OXYNORM 5 MG, GELULE [Suspect]
     Indication: PAIN
     Dosage: UNK
     Route: 048
     Dates: start: 20110322, end: 20110322
  7. TOPALGIC                           /00599202/ [Suspect]
     Indication: DIABETIC NEUROPATHY
     Dosage: UNK
     Route: 048
     Dates: end: 20110322
  8. RAMIPRIL [Concomitant]
  9. METFORMIN [Concomitant]
  10. LASIX [Concomitant]
  11. CRESTOR [Concomitant]
  12. SKENAN [Suspect]
     Indication: DIABETIC NEUROPATHY
     Dosage: 30 MG, UNK
     Route: 048
     Dates: end: 20110322
  13. ALDACTONE [Concomitant]
  14. DIGITALINE NATIVELLE [Concomitant]
  15. DEPAMIDE [Concomitant]

REACTIONS (6)
  - HYPOTENSION [None]
  - TACHYCARDIA [None]
  - DISTURBANCE IN ATTENTION [None]
  - RESPIRATORY DISORDER [None]
  - DRUG DIVERSION [None]
  - TOXICITY TO VARIOUS AGENTS [None]
